FAERS Safety Report 6910770-6 (Version None)
Quarter: 2010Q3

REPORT INFORMATION
  Report Type: 
  Country: None (occurrence: None)
  Receive Date: 20100716
  Receipt Date: 20091209
  Transmission Date: 20110219
  Serious: Yes (Hospitalization)
  Sender: FDA-Public Use
  Company Number: 2009289068

PATIENT
  Age: 87 Year
  Sex: Female

DRUGS (4)
  1. CELEBREX [Suspect]
     Indication: RHEUMATOID ARTHRITIS
     Dosage: 200 MG, 2X/DAY, ORAL
     Route: 048
     Dates: end: 20091021
  2. HYDROCHLOROTHIAZIDE [Concomitant]
  3. BENAZEPRIL HYDROCHLORIDE [Concomitant]
  4. NORVASC [Concomitant]

REACTIONS (2)
  - GASTRIC ULCER [None]
  - RENAL FAILURE ACUTE [None]
